FAERS Safety Report 11162662 (Version 1)
Quarter: 2015Q2

REPORT INFORMATION
  Report Type: Spontaneous
  Country: US (occurrence: US)
  Receive Date: 20150604
  Receipt Date: 20150604
  Transmission Date: 20150821
  Serious: No
  Sender: FDA-Public Use
  Company Number: US-SA-2015SA001516

PATIENT
  Age: 67 Year
  Sex: Male

DRUGS (3)
  1. LANTUS SOLOSTAR [Suspect]
     Active Substance: INSULIN GLARGINE
     Indication: TYPE 2 DIABETES MELLITUS
     Route: 065
     Dates: start: 2014
  2. LANTUS SOLOSTAR [Suspect]
     Active Substance: INSULIN GLARGINE
     Indication: TYPE 2 DIABETES MELLITUS
     Dosage: DOSE : 20 UNITS IN MORNING 10 UNITS IN EVENING
     Route: 065
  3. SOLOSTAR [Concomitant]
     Active Substance: DEVICE

REACTIONS (11)
  - Fatigue [Unknown]
  - Balance disorder [Unknown]
  - Blood glucose increased [Unknown]
  - Off label use [Unknown]
  - Glycosylated haemoglobin increased [Unknown]
  - Nervousness [Unknown]
  - Pruritus generalised [Unknown]
  - Feeling cold [Unknown]
  - Sleep disorder [Unknown]
  - Micturition urgency [Unknown]
  - Depressed mood [Unknown]

NARRATIVE: CASE EVENT DATE: 201412
